FAERS Safety Report 7346652-8 (Version None)
Quarter: 2011Q1

REPORT INFORMATION
  Report Type: 
  Country: None (occurrence: None)
  Receive Date: 20110311
  Receipt Date: 20110307
  Transmission Date: 20110831
  Serious: Yes (Death)
  Sender: FDA-Public Use
  Company Number: US-CUBIST-2010S1001773

PATIENT
  Age: 33 Year
  Sex: Female

DRUGS (4)
  1. CUBICIN [Suspect]
     Indication: ENTEROCOCCAL INFECTION
  2. CUBICIN [Suspect]
  3. ERTAPENEM [Concomitant]
     Indication: ABDOMINAL INFECTION
  4. CASPOFUNGIN [Concomitant]
     Indication: ABDOMINAL INFECTION

REACTIONS (4)
  - DEATH [None]
  - ESCHERICHIA BACTERAEMIA [None]
  - SEPSIS [None]
  - ENTEROCOCCAL BACTERAEMIA [None]
